FAERS Safety Report 8054804-7 (Version None)
Quarter: 2012Q1

REPORT INFORMATION
  Report Type: 
  Country: None (occurrence: None)
  Receive Date: 20120119
  Receipt Date: 20120109
  Transmission Date: 20120608
  Serious: Yes (Hospitalization)
  Sender: FDA-Public Use
  Company Number: US-BAYER-201036076NA

PATIENT
  Age: 22 Year
  Sex: Female
  Weight: 113.38 kg

DRUGS (11)
  1. METFORMIN HCL [Concomitant]
     Dosage: 500 MG, UNK
     Route: 048
     Dates: start: 20090723
  2. YASMIN [Suspect]
     Dosage: UNK
     Dates: start: 20040614, end: 20080101
  3. KETOCONAZOLE [Concomitant]
     Dosage: 2 %, UNK
     Dates: start: 20090717
  4. OMEPRAZOLE [Concomitant]
     Dosage: 20 MG, QD
     Route: 048
     Dates: start: 20090816
  5. YAZ [Suspect]
     Dosage: UNK
     Dates: start: 20040614, end: 20080101
  6. YAZ [Suspect]
     Dosage: UNK
     Dates: start: 20040614, end: 20090101
  7. NIZORAL [Concomitant]
     Dosage: 200 MG, UNK
     Route: 048
     Dates: start: 20090816
  8. CALCIUM CARBONATE [Concomitant]
     Dosage: 500 MG, UNK
     Route: 048
     Dates: start: 20090816
  9. MYLANTA [Concomitant]
     Dosage: 10 ML, UNK
     Route: 048
     Dates: start: 20090816
  10. SLEEP-ETTES [Concomitant]
     Dosage: 50 MG, UNK
     Route: 048
     Dates: start: 20090816
  11. YASMIN [Suspect]
     Dosage: UNK
     Dates: start: 20040614, end: 20090101

REACTIONS (11)
  - SCAR [None]
  - DEPRESSION [None]
  - CONSTIPATION [None]
  - DIARRHOEA [None]
  - CHOLECYSTITIS CHRONIC [None]
  - CHOLECYSTECTOMY [None]
  - ABDOMINAL DISTENSION [None]
  - DYSPEPSIA [None]
  - STRESS [None]
  - FLATULENCE [None]
  - ANXIETY [None]
